FAERS Safety Report 13257053 (Version 1)
Quarter: 2017Q1

REPORT INFORMATION
  Report Type: Spontaneous
  Country: FO (occurrence: FO)
  Receive Date: 20170221
  Receipt Date: 20170221
  Transmission Date: 20170428
  Serious: Yes (Hospitalization)
  Sender: FDA-Public Use
  Company Number: FO-LANNETT COMPANY, INC.-FO-2017LAN000579

PATIENT
  Age: 75 Year
  Sex: Male

DRUGS (6)
  1. ATORVASTATIN CALCIUM. [Suspect]
     Active Substance: ATORVASTATIN CALCIUM
     Indication: HYPERLIPIDAEMIA
     Dosage: 80 MG, QD
  2. RIVAROXABAN [Concomitant]
     Active Substance: RIVAROXABAN
     Indication: ATRIAL FIBRILLATION
     Dosage: UNK
  3. FUSIDIC ACID [Suspect]
     Active Substance: FUSIDIC ACID
     Indication: AORTIC ANEURYSM
     Dosage: 500 MG, BID
     Route: 048
  4. MOXIFLOXACIN. [Concomitant]
     Active Substance: MOXIFLOXACIN
     Indication: AORTIC ANEURYSM
     Dosage: 400 MG, QD
     Route: 048
  5. FUSIDIC ACID [Suspect]
     Active Substance: FUSIDIC ACID
     Indication: ABSCESS
  6. MOXIFLOXACIN. [Concomitant]
     Active Substance: MOXIFLOXACIN
     Indication: ABSCESS

REACTIONS (13)
  - Rhabdomyolysis [Recovering/Resolving]
  - Blood creatine phosphokinase increased [Recovered/Resolved]
  - Immobile [Recovered/Resolved]
  - Myalgia [Recovering/Resolving]
  - Muscular weakness [Recovered/Resolved]
  - Liver function test increased [Recovered/Resolved]
  - Hypotension [Recovered/Resolved]
  - Blood alkaline phosphatase increased [Recovered/Resolved]
  - Blood lactate dehydrogenase increased [Recovered/Resolved]
  - Brain natriuretic peptide increased [Recovered/Resolved]
  - Bedridden [Recovered/Resolved]
  - Drug interaction [Recovered/Resolved]
  - Myoglobin blood increased [Recovered/Resolved]
